FAERS Safety Report 17552837 (Version 2)
Quarter: 2020Q1

REPORT INFORMATION
  Report Type: Spontaneous
  Country: JP (occurrence: JP)
  Receive Date: 20200317
  Receipt Date: 20200326
  Transmission Date: 20200409
  Serious: Yes (Other)
  Sender: FDA-Public Use
  Company Number: JP-JNJFOC-20200311960

PATIENT

DRUGS (1)
  1. SIMPONI [Suspect]
     Active Substance: GOLIMUMAB
     Indication: PRODUCT USED FOR UNKNOWN INDICATION
     Dosage: GOLIMUMAB(GENETICAL RECOMBINATION):50MG
     Route: 058

REACTIONS (5)
  - Underdose [Unknown]
  - Injury associated with device [Unknown]
  - Device infusion issue [Unknown]
  - Device related infection [Unknown]
  - Needle issue [Unknown]
